FAERS Safety Report 20432824 (Version 2)
Quarter: 2022Q2

REPORT INFORMATION
  Report Type: Report from Study
  Country: GB (occurrence: GB)
  Receive Date: 20220205
  Receipt Date: 20220620
  Transmission Date: 20220721
  Serious: Yes (Hospitalization, Other)
  Sender: FDA-Public Use
  Company Number: GB-CELLTRION INC.-2022GB001061

PATIENT

DRUGS (24)
  1. TRASTUZUMAB [Suspect]
     Active Substance: TRASTUZUMAB
     Indication: Breast cancer metastatic
     Dosage: 472.5 MG, EVERY 3 WEEKS (PHARMACEUTICAL DOSE FORM: 230; CUMULATIVE DOSE TO FIRST REACTION: 427.5 MG)
     Route: 042
     Dates: start: 20160212
  2. TRASTUZUMAB [Suspect]
     Active Substance: TRASTUZUMAB
     Dosage: 472.5 MG, EVERY 3 WEEKS (PHARMACEUTICAL DOSE FORM: 230; CUMULATIVE DOSE TO FIRST REACTION: 427.5 MG)
     Route: 042
     Dates: start: 20160212
  3. TRASTUZUMAB [Suspect]
     Active Substance: TRASTUZUMAB
     Dosage: 630 MG, EVERY 3 WEEKS (PHARMACEUTICAL DOSE FORM: 230; CUMULATIVE DOSE TO FIRST REACTION: 1230.0 MG)
     Route: 042
     Dates: start: 20160121, end: 20160121
  4. TRASTUZUMAB [Suspect]
     Active Substance: TRASTUZUMAB
     Dosage: 630 MG, EVERY 3 WEEKS (PHARMACEUTICAL DOSE FORM: 230; CUMULATIVE DOSE TO FIRST REACTION: 1230.0 MG)
     Route: 042
     Dates: start: 20160121, end: 20160121
  5. DOCETAXEL [Suspect]
     Active Substance: DOCETAXEL
     Indication: Breast cancer metastatic
     Dosage: 94 MG, EVERY 3 WEEKS (CUMULATIVE DOSE TO FIRST REACTION: 179.04762 MG)
     Route: 042
     Dates: start: 20160122, end: 20160318
  6. DOCETAXEL [Suspect]
     Active Substance: DOCETAXEL
     Dosage: 94 MG, EVERY 3 WEEKS (CUMULATIVE DOSE TO FIRST REACTION: 179.04762 MG)
     Route: 042
     Dates: start: 20160122, end: 20160318
  7. DOCETAXEL [Suspect]
     Active Substance: DOCETAXEL
     Dosage: 74 MG, EVERY 3 WEEKS (CUMULATIVE DOSE TO FIRST REACTION: 56.38095 MG)
     Route: 042
     Dates: start: 20160318, end: 20160520
  8. DOCETAXEL [Suspect]
     Active Substance: DOCETAXEL
     Dosage: 74 MG, EVERY 3 WEEKS (CUMULATIVE DOSE TO FIRST REACTION: 56.38095 MG)
     Route: 042
     Dates: start: 20160318, end: 20160520
  9. PERTUZUMAB [Suspect]
     Active Substance: PERTUZUMAB
     Indication: Breast cancer metastatic
     Dosage: 840 MG (PHARMACEUTICAL DOSE FORM: 230)
     Route: 042
     Dates: start: 20160121, end: 20160121
  10. PERTUZUMAB [Suspect]
     Active Substance: PERTUZUMAB
     Dosage: 840 MG (PHARMACEUTICAL DOSE FORM: 230)
     Route: 042
     Dates: start: 20160121, end: 20160121
  11. PERTUZUMAB [Suspect]
     Active Substance: PERTUZUMAB
     Dosage: 420 MG, EVERY 3 WEEKS (PHARMACEUTICAL DOSE FORM: 230; CUMULATIVE DOSE: 380 MG))
     Route: 042
     Dates: start: 20160212
  12. PERTUZUMAB [Suspect]
     Active Substance: PERTUZUMAB
     Dosage: 420 MG, EVERY 3 WEEKS (PHARMACEUTICAL DOSE FORM: 230; CUMULATIVE DOSE: 380 MG))
     Route: 042
     Dates: start: 20160212
  13. AMLODIPINE [Concomitant]
     Active Substance: AMLODIPINE BESYLATE
     Indication: Hypertension
     Dosage: 5 MG, DAILY (CUMULATIVE DOSE: 7245 MG)
     Route: 048
     Dates: start: 20200219
  14. BUTRANS [Concomitant]
     Active Substance: BUPRENORPHINE
     Indication: Arthralgia
     Dosage: 5 UG, EVERY 1 DAY
     Route: 062
  15. DEXAMETHASONE [Concomitant]
     Active Substance: DEXAMETHASONE
     Dosage: 8 MG EVERY 0.5 DAY
     Route: 048
     Dates: start: 20160211, end: 20160214
  16. DEXAMETHASONE [Concomitant]
     Active Substance: DEXAMETHASONE
     Dosage: 8 MG EVERY 0.5 DAY
     Route: 042
     Dates: start: 20160121, end: 20160123
  17. DEXAMETHASONE [Concomitant]
     Active Substance: DEXAMETHASONE
     Dosage: 16 MG, DAILY (DOSE FORM: 245)
     Route: 048
     Dates: start: 20160211, end: 20160214
  18. DEXAMETHASONE [Concomitant]
     Active Substance: DEXAMETHASONE
     Dosage: 16 MG, DAILY (CUMULATIVE DOSE: 656 MG)
     Route: 042
     Dates: start: 20160121, end: 20160123
  19. FILGRASTIM [Concomitant]
     Active Substance: FILGRASTIM
     Dosage: 480 UG, EVERY 1 DAY
     Route: 042
     Dates: start: 20160123, end: 20160127
  20. IBUPROFEN [Concomitant]
     Active Substance: IBUPROFEN
     Indication: Arthralgia
     Dosage: 1 DROP, 1 AS NECESSARY (DOSE FORM: 95)
     Route: 061
  21. LANSOPRAZOLE [Concomitant]
     Active Substance: LANSOPRAZOLE
     Indication: Dyspepsia
     Dosage: 30 MG, (PHARMACEUTICAL DOSE FORM: 245)
     Route: 048
     Dates: start: 20160210
  22. METOCLOPRAMIDE [Concomitant]
     Active Substance: METOCLOPRAMIDE
     Dosage: 10 MG
     Route: 042
     Dates: start: 20160122, end: 20160122
  23. METOCLOPRAMIDE [Concomitant]
     Active Substance: METOCLOPRAMIDE
     Dosage: 10 MG
     Route: 042
     Dates: start: 20160212, end: 20160212
  24. ACETAMINOPHEN [Concomitant]
     Active Substance: ACETAMINOPHEN
     Indication: Arthralgia
     Dosage: 1 G, 1 AS NECESSARY (DOSE FORM: 245)
     Route: 048

REACTIONS (9)
  - Deep vein thrombosis [Not Recovered/Not Resolved]
  - Peripheral swelling [Not Recovered/Not Resolved]
  - Rash [Recovered/Resolved]
  - Cellulitis [Not Recovered/Not Resolved]
  - Diarrhoea [Recovered/Resolved]
  - Decreased appetite [Not Recovered/Not Resolved]
  - Nausea [Not Recovered/Not Resolved]
  - Fatigue [Recovered/Resolved]
  - Fatigue [Recovered/Resolved]

NARRATIVE: CASE EVENT DATE: 20160302
